FAERS Safety Report 8456872-7 (Version None)
Quarter: 2012Q2

REPORT INFORMATION
  Report Type: 
  Country: None (occurrence: None)
  Receive Date: 20120614
  Receipt Date: 20120529
  Transmission Date: 20120825
  Serious: Yes (Death, Other)
  Sender: FDA-Public Use
  Company Number: 2012P1034209

PATIENT
  Age: 82 Year
  Sex: Female

DRUGS (1)
  1. WARFARIN SODIUM [Suspect]
     Indication: POST PROCEDURAL PULMONARY EMBOLISM

REACTIONS (3)
  - SKIN NECROSIS [None]
  - SEPSIS [None]
  - MULTI-ORGAN FAILURE [None]
